FAERS Safety Report 23760314 (Version 1)
Quarter: 2024Q2

REPORT INFORMATION
  Report Type: Spontaneous
  Country: US (occurrence: US)
  Receive Date: 20240419
  Receipt Date: 20240419
  Transmission Date: 20240716
  Serious: Yes (Disabling, Other)
  Sender: FDA-Public Use
  Company Number: US-JNJFOC-20240435750

PATIENT
  Age: 30 Year
  Sex: Female

DRUGS (2)
  1. ELMIRON [Suspect]
     Active Substance: PENTOSAN POLYSULFATE SODIUM
     Indication: Cystitis interstitial
     Dosage: VARYING DOSES OF 200MG TWICE A DAY, 100MG TWICE DAILY, 100MG 4 PILLS TWICE DAILY, 100MG 4 ONCE DAILY
     Route: 048
     Dates: start: 2001, end: 2012
  2. ELMIRON [Suspect]
     Active Substance: PENTOSAN POLYSULFATE SODIUM
     Route: 048

REACTIONS (5)
  - Blindness [Unknown]
  - Acquired pigmented retinopathy [Not Recovered/Not Resolved]
  - Maculopathy [Not Recovered/Not Resolved]
  - Exposure during pregnancy [Recovered/Resolved]
  - Off label use [Unknown]

NARRATIVE: CASE EVENT DATE: 20010101
